FAERS Safety Report 10595196 (Version 1)
Quarter: 2014Q4

REPORT INFORMATION
  Report Type: Spontaneous
  Country: US (occurrence: None)
  Receive Date: 20141118
  Receipt Date: 20141118
  Transmission Date: 20150529
  Serious: Yes (Other)
  Sender: FDA-Public Use
  Company Number: 2014SA155251

PATIENT
  Age: 44 Year
  Sex: Female

DRUGS (1)
  1. ICY HOT MEDICATED NO MESS APPLICATOR [Suspect]
     Active Substance: MENTHOL
     Indication: MUSCULOSKELETAL STIFFNESS
     Dates: start: 20141102, end: 20141102

REACTIONS (2)
  - Burns second degree [None]
  - Blister [None]

NARRATIVE: CASE EVENT DATE: 20141102
